FAERS Safety Report 6710675-X (Version None)
Quarter: 2010Q2

REPORT INFORMATION
  Report Type: 
  Country: None (occurrence: None)
  Receive Date: 20100504
  Receipt Date: 20100504
  Transmission Date: 20101027
  Serious: Yes (Disabling)
  Sender: FDA-Public Use
  Company Number: None

PATIENT
  Age: 72 Year
  Sex: Female
  Weight: 54.5 kg

DRUGS (1)
  1. LEVAQUIN [Suspect]
     Indication: PNEUMONIA
     Dosage: 500 MG TABLET ONCE A DAY BY MOUTH
     Route: 048
     Dates: start: 20100329, end: 20100406

REACTIONS (2)
  - PAIN IN EXTREMITY [None]
  - TENDON DISORDER [None]
